FAERS Safety Report 8547468 (Version 4)
Quarter: 2013Q1

REPORT INFORMATION
  Report Type: Spontaneous
  Country: ES (occurrence: ES)
  Receive Date: 20120504
  Receipt Date: 20130227
  Transmission Date: 20140127
  Serious: Yes (Death)
  Sender: FDA-Public Use
  Company Number: ES-VERTEX PHARMACEUTICALS INC.-000000000000000602

PATIENT
  Age: 52 Year
  Sex: Male

DRUGS (6)
  1. INCIVO [Suspect]
     Indication: HEPATITIS C
     Dosage: DOSAGE FORM: TABLET: EVERY 8 HOURS
     Route: 048
     Dates: start: 20120220, end: 20120418
  2. PEGINTERFERON ALFA [Concomitant]
     Indication: HEPATITIS C
     Route: 065
     Dates: start: 2011
  3. RIBAVIRIN [Concomitant]
     Indication: HEPATITIS C
     Route: 065
     Dates: start: 2011
  4. PARACETAMOL [Concomitant]
     Indication: PRODUCT USED FOR UNKNOWN INDICATION
     Route: 048
  5. PARACETAMOL [Concomitant]
     Route: 048
  6. ERYTHROPOIETIN [Concomitant]
     Indication: ANAEMIA
     Route: 058
     Dates: start: 20120403

REACTIONS (3)
  - Death [Fatal]
  - Fatigue [Fatal]
  - Diarrhoea [Fatal]
